FAERS Safety Report 24982525 (Version 4)
Quarter: 2025Q2

REPORT INFORMATION
  Report Type: Spontaneous
  Country: US (occurrence: US)
  Receive Date: 20250218
  Receipt Date: 20250605
  Transmission Date: 20250717
  Serious: Yes (Other)
  Sender: PFIZER
  Company Number: US-PFIZER INC-202400311864

PATIENT
  Age: 70 Year
  Sex: Female

DRUGS (4)
  1. IBRANCE [Suspect]
     Active Substance: PALBOCICLIB
     Indication: Breast cancer female
     Dates: start: 20241021
  2. IBRANCE [Suspect]
     Active Substance: PALBOCICLIB
     Route: 048
  3. ANASTROZOLE [Suspect]
     Active Substance: ANASTROZOLE
  4. NEURONTIN [Concomitant]
     Active Substance: GABAPENTIN
     Dosage: 300 MG, 2X/DAY (2 (300 MG) CAPSULE ORAL AC (LID) + AT BEDTIME)
     Route: 048
     Dates: start: 20120101

REACTIONS (5)
  - Hallucination [Unknown]
  - Panic reaction [Unknown]
  - Crying [Unknown]
  - Confusional state [Unknown]
  - Cerebral disorder [Unknown]

NARRATIVE: CASE EVENT DATE: 20250101
